FAERS Safety Report 7356629-4 (Version None)
Quarter: 2011Q1

REPORT INFORMATION
  Report Type: 
  Country: None (occurrence: None)
  Receive Date: 20110316
  Receipt Date: 20110304
  Transmission Date: 20110831
  Serious: Yes (Hospitalization, Other)
  Sender: FDA-Public Use
  Company Number: PHHY2010BR68975

PATIENT
  Sex: Female

DRUGS (3)
  1. RIVOTRIL [Concomitant]
     Indication: DEPRESSION
     Dosage: UNK
  2. FORASEQ [Suspect]
     Indication: BRONCHITIS CHRONIC
  3. FORASEQ [Suspect]
     Indication: ASTHMA
     Dosage: ONLY AT NIGHT WHEN THE ASTHMA AND BRONCHITIS EPISODES WERE CONTROLLED, BUT OTHERWISE, IN THE MORNING

REACTIONS (9)
  - MALAISE [None]
  - NEPHROLITHIASIS [None]
  - THROAT IRRITATION [None]
  - INFECTION [None]
  - PULMONARY OEDEMA [None]
  - FATIGUE [None]
  - WEIGHT DECREASED [None]
  - DRUG DOSE OMISSION [None]
  - AGEUSIA [None]
